FAERS Safety Report 19032653 (Version 1)
Quarter: 2021Q1

REPORT INFORMATION
  Report Type: Spontaneous
  Country: US (occurrence: US)
  Receive Date: 20210319
  Receipt Date: 20210319
  Transmission Date: 20210420
  Serious: Yes (Other)
  Sender: FDA-Public Use
  Company Number: US-ABBVIE-21K-163-3823648-00

PATIENT

DRUGS (4)
  1. VENETOCLAX. [Suspect]
     Active Substance: VENETOCLAX
     Indication: CHRONIC LYMPHOCYTIC LEUKAEMIA
     Route: 048
  2. IMBRUVICA [Suspect]
     Active Substance: IBRUTINIB
     Indication: CHRONIC LYMPHOCYTIC LEUKAEMIA
     Route: 048
  3. IMBRUVICA [Suspect]
     Active Substance: IBRUTINIB
     Route: 048
  4. IMBRUVICA [Suspect]
     Active Substance: IBRUTINIB
     Route: 048

REACTIONS (16)
  - Atrial fibrillation [Unknown]
  - Nausea [Unknown]
  - Neutropenia [Unknown]
  - Metastatic malignant melanoma [Unknown]
  - Lung cancer metastatic [Unknown]
  - Diarrhoea [Unknown]
  - Infection [Unknown]
  - Increased tendency to bruise [Unknown]
  - Myelodysplastic syndrome [Unknown]
  - Haemorrhage [Unknown]
  - Lung adenocarcinoma [Unknown]
  - Syncope [Unknown]
  - Thrombocytopenia [Unknown]
  - Skin cancer [Unknown]
  - Hypertension [Unknown]
  - Fatigue [Unknown]
